FAERS Safety Report 20026426 (Version 1)
Quarter: 2021Q4

REPORT INFORMATION
  Report Type: Spontaneous
  Country: None (occurrence: US)
  Receive Date: 20211102
  Receipt Date: 20211102
  Transmission Date: 20220303
  Serious: No
  Sender: FDA-Public Use
  Company Number: US-Breckenridge Pharmaceutical, Inc.-2121363

PATIENT
  Sex: Male

DRUGS (1)
  1. DULOXETINE [Suspect]
     Active Substance: DULOXETINE
     Route: 048

REACTIONS (6)
  - Nausea [Unknown]
  - Vertigo [Unknown]
  - Abdominal pain upper [Unknown]
  - Heart rate increased [Unknown]
  - Fatigue [Unknown]
  - Headache [Unknown]
